FAERS Safety Report 21147573 (Version 1)
Quarter: 2022Q3

REPORT INFORMATION
  Report Type: Spontaneous
  Country: US (occurrence: US)
  Receive Date: 20220729
  Receipt Date: 20220729
  Transmission Date: 20221027
  Serious: No
  Sender: FDA-Public Use
  Company Number: US-LEO Pharma-344258

PATIENT
  Sex: Male

DRUGS (1)
  1. ADBRY [Suspect]
     Active Substance: TRALOKINUMAB-LDRM
     Indication: Eczema
     Dosage: DOSAGE : 150 MG EVERY 14 DAYS SUBCUTANEOUSLY
     Route: 058
     Dates: start: 20220618

REACTIONS (2)
  - Arthralgia [Unknown]
  - Incorrect dose administered [Unknown]
